FAERS Safety Report 5595116-0 (Version None)
Quarter: 2008Q1

REPORT INFORMATION
  Report Type: 
  Country: None (occurrence: None)
  Receive Date: 20080117
  Receipt Date: 20080111
  Transmission Date: 20080703
  Serious: Yes (Hospitalization, Other)
  Sender: FDA-Public Use
  Company Number: JP-BOEHRINGER INGELHEIM PHARMACEUTICALS, INC.-2008-BP-00317NB

PATIENT
  Sex: Female
  Weight: 56 kg

DRUGS (15)
  1. AGGRENOX [Suspect]
     Indication: CEREBROVASCULAR ACCIDENT PROPHYLAXIS
     Dosage: 400/500 MG
     Route: 048
     Dates: start: 20070131, end: 20080104
  2. GASTER D [Concomitant]
     Indication: GASTRIC MUCOSAL LESION
     Route: 048
     Dates: start: 20071205
  3. DAONIL [Concomitant]
     Indication: DIABETES MELLITUS
     Route: 048
     Dates: start: 20071122, end: 20080104
  4. AMLODIN [Concomitant]
     Indication: HYPERTENSION
     Route: 048
     Dates: start: 20050119
  5. MICARDIS [Concomitant]
     Indication: HYPERTENSION
     Route: 048
  6. LOCHOL [Concomitant]
     Indication: HYPERLIPIDAEMIA
     Route: 048
     Dates: start: 20071121
  7. GLYSENNID [Concomitant]
     Indication: CONSTIPATION
     Route: 048
     Dates: start: 20050216
  8. SEREVENT [Concomitant]
     Indication: ASTHMA
     Route: 055
     Dates: start: 20030101
  9. FLUTIDE [Concomitant]
     Indication: ASTHMA
     Route: 055
     Dates: start: 20030101
  10. HUSTAGIN [Concomitant]
     Indication: TRACHEITIS
     Route: 048
     Dates: start: 20060601
  11. APRICOT KERNEL WATER [Concomitant]
     Indication: TRACHEITIS
     Route: 048
     Dates: start: 20060601
  12. MEDICON [Concomitant]
     Indication: TRACHEITIS
     Route: 048
     Dates: start: 20060601
  13. SELTOUCH [Concomitant]
     Indication: CONTUSION
     Route: 062
     Dates: start: 20070101
  14. KARY UNI [Concomitant]
     Indication: CATARACT
     Route: 031
     Dates: start: 20050101
  15. SHAKUYAKU-KANZO-TO [Concomitant]
     Indication: OSTEOARTHRITIS
     Route: 048
     Dates: start: 20060101

REACTIONS (4)
  - DIVERTICULUM INTESTINAL HAEMORRHAGIC [None]
  - GASTRIC CANCER [None]
  - LARGE INTESTINE CARCINOMA [None]
  - VAGUS NERVE DISORDER [None]
